FAERS Safety Report 6137057-6 (Version None)
Quarter: 2009Q1

REPORT INFORMATION
  Report Type: 
  Country: None (occurrence: None)
  Receive Date: 20090326
  Receipt Date: 20090326
  Transmission Date: 20090719
  Serious: Yes (Life-Threatening, Hospitalization)
  Sender: FDA-Public Use
  Company Number: None

PATIENT
  Age: 84 Year
  Sex: Male
  Weight: 61 kg

DRUGS (1)
  1. IRON DEXTRAN [Suspect]
     Indication: ANAEMIA
     Dosage: 25 MG ONCE IV
     Route: 042
     Dates: start: 20090112, end: 20090112

REACTIONS (3)
  - ANAPHYLACTIC REACTION [None]
  - LETHARGY [None]
  - SEDATION [None]
